FAERS Safety Report 23367034 (Version 1)
Quarter: 2024Q1

REPORT INFORMATION
  Report Type: Spontaneous
  Country: US (occurrence: US)
  Receive Date: 20240104
  Receipt Date: 20240104
  Transmission Date: 20240409
  Serious: Yes (Hospitalization)
  Sender: FDA-Public Use
  Company Number: US-ANIPHARMA-2023-US-015252

PATIENT
  Age: 48 Year
  Sex: Female
  Weight: 63.5 kg

DRUGS (2)
  1. FLUVOXAMINE MALEATE [Suspect]
     Active Substance: FLUVOXAMINE MALEATE
     Indication: Obsessive-compulsive disorder
     Dosage: 50MG / 100MG / 150MG / 200MG / 300MG; 50 MG FOR ONE WEEK, 25 MG FOR ONE WEEK THEN DISCONTINUE
     Route: 048
     Dates: start: 202210
  2. FLUVOXAMINE MALEATE [Suspect]
     Active Substance: FLUVOXAMINE MALEATE
     Indication: Obsessive-compulsive disorder
     Route: 048
     Dates: start: 202305

REACTIONS (19)
  - Nightmare [Recovered/Resolved]
  - Palpitations [Recovered/Resolved]
  - Feeling abnormal [Not Recovered/Not Resolved]
  - Disorientation [Not Recovered/Not Resolved]
  - Vaginal haemorrhage [Not Recovered/Not Resolved]
  - Abdominal discomfort [Not Recovered/Not Resolved]
  - Anxiety [Not Recovered/Not Resolved]
  - Disturbance in attention [Not Recovered/Not Resolved]
  - Pain [Recovered/Resolved]
  - Irritability [Not Recovered/Not Resolved]
  - Blood urea increased [Unknown]
  - Glomerular filtration rate decreased [Unknown]
  - Insomnia [Not Recovered/Not Resolved]
  - Incontinence [Recovered/Resolved]
  - Muscle spasms [Recovered/Resolved]
  - Contusion [Not Recovered/Not Resolved]
  - Drug ineffective [Unknown]
  - Accidental overdose [Recovered/Resolved]
  - Nausea [Recovered/Resolved]

NARRATIVE: CASE EVENT DATE: 20230101
